FAERS Safety Report 18911003 (Version 4)
Quarter: 2021Q3

REPORT INFORMATION
  Report Type: Spontaneous
  Country: US (occurrence: US)
  Receive Date: 20210218
  Receipt Date: 20210825
  Transmission Date: 20211014
  Serious: No
  Sender: FDA-Public Use
  Company Number: US-PFIZER INC-2018500777

PATIENT
  Age: 78 Year
  Sex: Female
  Weight: 95.25 kg

DRUGS (3)
  1. LYRICA [Suspect]
     Active Substance: PREGABALIN
     Indication: NEUROPATHY PERIPHERAL
  2. LYRICA [Suspect]
     Active Substance: PREGABALIN
     Indication: DIABETIC NEUROPATHY
     Dosage: 75 MG, 3X/DAY (TAKE 1 TABLET 3 TIMES A DAY)
     Route: 048
     Dates: start: 20170506
  3. LYRICA [Suspect]
     Active Substance: PREGABALIN
     Indication: LIMB DISCOMFORT

REACTIONS (3)
  - Visual impairment [Unknown]
  - Drug withdrawal syndrome [Unknown]
  - Memory impairment [Unknown]
